FAERS Safety Report 11370476 (Version 1)
Quarter: 2015Q3

REPORT INFORMATION
  Report Type: Spontaneous
  Country: US (occurrence: US)
  Receive Date: 20150812
  Receipt Date: 20150812
  Transmission Date: 20151125
  Serious: Yes (Hospitalization)
  Sender: FDA-Public Use
  Company Number: US-JNJFOC-20150802346

PATIENT
  Age: 53 Year
  Sex: Female
  Weight: 54.89 kg

DRUGS (2)
  1. TOPAMAX [Suspect]
     Active Substance: TOPIRAMATE
     Indication: TYPICAL AURA WITHOUT HEADACHE
     Route: 048
     Dates: start: 2003
  2. TOPAMAX [Suspect]
     Active Substance: TOPIRAMATE
     Indication: TYPICAL AURA WITHOUT HEADACHE
     Route: 048

REACTIONS (4)
  - Hypersensitivity [Unknown]
  - Rotator cuff syndrome [Not Recovered/Not Resolved]
  - Adverse drug reaction [Unknown]
  - Anaphylactic reaction [Recovered/Resolved]

NARRATIVE: CASE EVENT DATE: 2007
